FAERS Safety Report 10528300 (Version 1)
Quarter: 2014Q4

REPORT INFORMATION
  Report Type: Report from Study
  Country: BR (occurrence: BR)
  Receive Date: 20141020
  Receipt Date: 20141020
  Transmission Date: 20150528
  Serious: Yes (Hospitalization, Disabling)
  Sender: FDA-Public Use
  Company Number: BR-ABBVIE-14K-020-1295816-00

PATIENT
  Age: 39 Year
  Sex: Female
  Weight: 60 kg

DRUGS (4)
  1. HUMIRA [Suspect]
     Active Substance: ADALIMUMAB
     Indication: CROHN^S DISEASE
     Dosage: UNSPECIFIED INDUCTION DOSE
     Route: 058
     Dates: start: 20140722, end: 20140722
  2. BETACAROTENO/ASCORBIC ACID/COPPER SULPHATE/ASSOC (VITERGAN ZINCO PLUS) [Concomitant]
     Indication: VITAMIN SUPPLEMENTATION
     Route: 048
     Dates: start: 20140928
  3. HUMIRA [Suspect]
     Active Substance: ADALIMUMAB
     Route: 058
     Dates: end: 20140916
  4. PROLIVE [Concomitant]
     Indication: DYSBACTERIOSIS
     Route: 048
     Dates: start: 20140928

REACTIONS (7)
  - Immunodeficiency [Unknown]
  - Lymph gland infection [Unknown]
  - Lymphadenopathy [Recovering/Resolving]
  - Wound [Unknown]
  - Rheumatic disorder [Unknown]
  - Rheumatoid arthritis [Not Recovered/Not Resolved]
  - Abasia [Recovering/Resolving]

NARRATIVE: CASE EVENT DATE: 2014
